FAERS Safety Report 11433010 (Version 1)
Quarter: 2015Q3

REPORT INFORMATION
  Report Type: Spontaneous
  Country: US (occurrence: None)
  Receive Date: 20150827
  Receipt Date: 20150827
  Transmission Date: 20151125
  Serious: Yes (Death, Life-Threatening, Hospitalization, Other)
  Sender: FDA-Public Use
  Company Number: US-WYE-H15017710

PATIENT
  Age: 57 Year
  Sex: Female
  Weight: 55.6 kg

DRUGS (14)
  1. REGLAN [Concomitant]
     Active Substance: METOCLOPRAMIDE HYDROCHLORIDE
  2. MAGNESIUM OXIDE (MAGNESIUM OXIDE) [Suspect]
     Active Substance: MAGNESIUM OXIDE
     Indication: HYPOMAGNESAEMIA
     Route: 048
     Dates: start: 20100204, end: 20100331
  3. PREDNISONE (PREDNISONE) [Concomitant]
     Active Substance: PREDNISONE
  4. HUMALOG [Concomitant]
     Active Substance: INSULIN LISPRO
  5. ASPIRIN. [Concomitant]
     Active Substance: ASPIRIN
  6. MYFORTIC (MYCOPHENOLIC ACID SODIUM SALT) [Concomitant]
  7. CELEXA [Concomitant]
     Active Substance: CITALOPRAM HYDROBROMIDE
  8. ISONIAZID (ISONIAZID) [Concomitant]
     Active Substance: ISONIAZID
  9. K-PHOS NEUTRAL [Suspect]
     Active Substance: POTASSIUM PHOSPHATE\SODIUM PHOSPHATE
     Indication: HYPOPHOSPHATAEMIA
     Route: 048
     Dates: end: 20100311
  10. CALCIUM CARBONATE (CALCIUM CARBONATE) [Concomitant]
  11. TACROLIMUS. [Suspect]
     Active Substance: TACROLIMUS
     Indication: PROPHYLAXIS AGAINST TRANSPLANT REJECTION
     Dosage: 2 MG IN AM 1 MG IN PM, ORAL
     Route: 048
     Dates: start: 20100126
  12. BACTRIM [Suspect]
     Active Substance: SULFAMETHOXAZOLE\TRIMETHOPRIM
     Indication: PROPHYLAXIS AGAINST TRANSPLANT REJECTION
     Dosage: 400MG/80MG, 1X/DAY, ORAL
     Route: 048
     Dates: start: 20100201, end: 20100331
  13. VITAMIN B6 [Concomitant]
     Active Substance: PYRIDOXINE HYDROCHLORIDE
  14. PRILOSEC (OMEPRAZOLE) [Concomitant]
     Active Substance: OMEPRAZOLE MAGNESIUM

REACTIONS (9)
  - Syncope [None]
  - Coronary artery disease [None]
  - Hyperkalaemia [None]
  - Electrocardiogram T wave abnormal [None]
  - Hypotension [None]
  - Disease progression [None]
  - Diabetes mellitus [None]
  - Diarrhoea [None]
  - Electrocardiogram change [None]

NARRATIVE: CASE EVENT DATE: 20100329
